FAERS Safety Report 24309940 (Version 2)
Quarter: 2024Q3

REPORT INFORMATION
  Report Type: Spontaneous
  Country: US (occurrence: US)
  Receive Date: 20240912
  Receipt Date: 20240921
  Transmission Date: 20241017
  Serious: No
  Sender: HETERO
  Company Number: US-HETERO-HET2024US02826

PATIENT

DRUGS (1)
  1. PREGABALIN [Suspect]
     Active Substance: PREGABALIN
     Indication: Product used for unknown indication
     Dosage: 300 MILLIGRAM
     Route: 065

REACTIONS (3)
  - Product substitution issue [Unknown]
  - Product quality issue [Unknown]
  - Drug effect less than expected [Unknown]
